FAERS Safety Report 4373573-5 (Version None)
Quarter: 2004Q1

REPORT INFORMATION
  Report Type: 
  Country: None (occurrence: None)
  Receive Date: 20040305
  Receipt Date: 20040202
  Transmission Date: 20041129
  Serious: Yes (Other)
  Sender: FDA-Public Use
  Company Number: 2004UW01711

PATIENT
  Age: 66 Year
  Sex: Male
  Weight: 104.3273 kg

DRUGS (2)
  1. CRESTOR [Suspect]
     Indication: BLOOD CHOLESTEROL INCREASED
     Dosage: 10 MG PO
     Route: 048
  2. BLOOD PRESSURE MEDICATION [Concomitant]

REACTIONS (3)
  - HYPERHIDROSIS [None]
  - INSOMNIA [None]
  - NIGHTMARE [None]
